FAERS Safety Report 24255741 (Version 1)
Quarter: 2024Q3

REPORT INFORMATION
  Report Type: Report from Study
  Country: MX (occurrence: MX)
  Receive Date: 20240827
  Receipt Date: 20240827
  Transmission Date: 20241017
  Serious: Yes (Other)
  Sender: NOVARTIS
  Company Number: MX-002147023-NVSC2024MX167704

PATIENT
  Age: 50 Year
  Sex: Male
  Weight: 71 kg

DRUGS (1)
  1. OFATUMUMAB [Suspect]
     Active Substance: OFATUMUMAB
     Indication: Multiple sclerosis
     Dosage: 20 MG
     Route: 058
     Dates: start: 202408

REACTIONS (6)
  - Bronchial hyperreactivity [Unknown]
  - Feeling cold [Unknown]
  - Tremor [Unknown]
  - Insomnia [Unknown]
  - Hypokinesia [Unknown]
  - Fear [Unknown]

NARRATIVE: CASE EVENT DATE: 20240801
